FAERS Safety Report 20449827 (Version 2)
Quarter: 2022Q1

REPORT INFORMATION
  Report Type: Other
  Country: CN (occurrence: None)
  Receive Date: 20220209
  Receipt Date: 20220225
  Transmission Date: 20220423
  Serious: Yes (Hospitalization)
  Sender: FDA-Public Use
  Company Number: CN-ROCHE-3014704

PATIENT
  Sex: Male

DRUGS (2)
  1. TECENTRIQ [Suspect]
     Active Substance: ATEZOLIZUMAB
     Indication: Hepatocellular carcinoma
     Route: 041
     Dates: start: 20220124
  2. DONAFENIB [Concomitant]
     Indication: Hepatocellular carcinoma

REACTIONS (1)
  - Haematemesis [Recovering/Resolving]

NARRATIVE: CASE EVENT DATE: 20220124
